FAERS Safety Report 9107672 (Version 1)
Quarter: 2013Q1

REPORT INFORMATION
  Report Type: Spontaneous
  Country: US (occurrence: US)
  Receive Date: 20130221
  Receipt Date: 20130221
  Transmission Date: 20140127
  Serious: No
  Sender: FDA-Public Use
  Company Number: US-009507513-1302USA009821

PATIENT
  Age: 86 Year
  Sex: Female

DRUGS (3)
  1. CORICIDIN COUGH + CHEST MAXIMUM [Suspect]
     Indication: MALAISE
     Dosage: UNK, UNKNOWN
     Route: 048
     Dates: start: 20121204
  2. CORICIDIN COUGH + CHEST MAXIMUM [Suspect]
     Dosage: 2 DF, ONCE
     Route: 048
     Dates: start: 20121207
  3. COUMADIN [Concomitant]
     Indication: PRODUCT USED FOR UNKNOWN INDICATION
     Dosage: UNK, UNKNOWN

REACTIONS (5)
  - Arthralgia [Not Recovered/Not Resolved]
  - Dizziness [Unknown]
  - Dyspepsia [Unknown]
  - Wrong technique in drug usage process [Unknown]
  - Drug ineffective [Unknown]
